FAERS Safety Report 22393630 (Version 1)
Quarter: 2023Q2

REPORT INFORMATION
  Report Type: Spontaneous
  Country: US (occurrence: None)
  Receive Date: 20230531
  Receipt Date: 20230531
  Transmission Date: 20230721
  Serious: Yes (Other)
  Sender: FDA-Public Use
  Company Number: None

PATIENT
  Sex: Female
  Weight: 97.5 kg

DRUGS (15)
  1. OLUMIANT [Suspect]
     Active Substance: BARICITINIB
     Indication: Alopecia areata
     Dates: end: 20230531
  2. NURTEC ODT [Concomitant]
     Active Substance: RIMEGEPANT SULFATE
  3. SUCRALFATE [Concomitant]
     Active Substance: SUCRALFATE
  4. IMDUR [Concomitant]
     Active Substance: ISOSORBIDE MONONITRATE
  5. OZEMPIC [Concomitant]
     Active Substance: SEMAGLUTIDE
  6. JARDIANCE [Concomitant]
     Active Substance: EMPAGLIFLOZIN
  7. LEVOTHYROXINE [Concomitant]
     Active Substance: LEVOTHYROXINE
  8. METFORMIN [Concomitant]
     Active Substance: METFORMIN HYDROCHLORIDE
  9. URSODIOL [Concomitant]
     Active Substance: URSODIOL
  10. SPIRONOLACTONE [Concomitant]
     Active Substance: SPIRONOLACTONE
  11. TIZANIDINE [Concomitant]
     Active Substance: TIZANIDINE
  12. COENZYME Q10 [Concomitant]
     Active Substance: DIETARY SUPPLEMENT\UBIDECARENONE
  13. EYSUVIS [Concomitant]
     Active Substance: LOTEPREDNOL ETABONATE
  14. RESTASIS [Concomitant]
     Active Substance: CYCLOSPORINE
  15. ASPIRIN [Concomitant]
     Active Substance: ASPIRIN

REACTIONS (4)
  - Abdominal distension [None]
  - Abdominal pain [None]
  - Paraesthesia [None]
  - Therapy cessation [None]

NARRATIVE: CASE EVENT DATE: 20230529
